FAERS Safety Report 17272099 (Version 1)
Quarter: 2020Q1

REPORT INFORMATION
  Report Type: Spontaneous
  Country: US (occurrence: US)
  Receive Date: 20200115
  Receipt Date: 20200115
  Transmission Date: 20200409
  Serious: Yes (Other)
  Sender: FDA-Public Use
  Company Number: US-PFIZER INC-2019548738

PATIENT
  Age: 72 Year
  Sex: Male
  Weight: 107 kg

DRUGS (3)
  1. XELJANZ [Suspect]
     Active Substance: TOFACITINIB CITRATE
     Indication: ARTHRITIS
  2. XELJANZ [Suspect]
     Active Substance: TOFACITINIB CITRATE
     Indication: COLITIS ULCERATIVE
     Dosage: 10 MG, 2X/DAY
     Dates: start: 201901, end: 201907
  3. APRISO [Concomitant]
     Active Substance: MESALAMINE
     Dosage: UNK
     Dates: start: 201501

REACTIONS (1)
  - Rectal abscess [Not Recovered/Not Resolved]

NARRATIVE: CASE EVENT DATE: 20190730
